FAERS Safety Report 9894246 (Version 1)
Quarter: 2014Q1

REPORT INFORMATION
  Report Type: Spontaneous
  Country: US (occurrence: US)
  Receive Date: 20140213
  Receipt Date: 20140213
  Transmission Date: 20141002
  Serious: Yes (Other)
  Sender: FDA-Public Use
  Company Number: US-GLAXOSMITHKLINE-A1050482A

PATIENT
  Age: 30 Year
  Sex: Female

DRUGS (3)
  1. AVODART [Suspect]
     Indication: ILL-DEFINED DISORDER
     Route: 062
  2. PRENATAL VITAMINS [Concomitant]
  3. BETAMETHASONE [Concomitant]

REACTIONS (5)
  - Gestational diabetes [Unknown]
  - Premature delivery [Unknown]
  - Live birth [Unknown]
  - Accidental exposure to product [Unknown]
  - Exposure during pregnancy [Unknown]
